FAERS Safety Report 5363387-1 (Version None)
Quarter: 2007Q2

REPORT INFORMATION
  Report Type: 
  Country: None (occurrence: None)
  Receive Date: 20070620
  Receipt Date: 20070619
  Transmission Date: 20071010
  Serious: Yes (Hospitalization)
  Sender: FDA-Public Use
  Company Number: DK-BRISTOL-MYERS SQUIBB COMPANY-13818554

PATIENT
  Age: 31 Year
  Sex: Male

DRUGS (4)
  1. TAXOL [Suspect]
     Indication: GERM CELL CANCER
     Route: 042
     Dates: start: 20070608, end: 20070612
  2. ETOPOSIDE [Suspect]
     Indication: GERM CELL CANCER
  3. CISPLATIN [Suspect]
     Indication: GERM CELL CANCER
  4. BLEOMYCIN SULFATE [Suspect]
     Indication: GERM CELL CANCER

REACTIONS (1)
  - FEBRILE NEUTROPENIA [None]
